FAERS Safety Report 12223874 (Version 1)
Quarter: 2016Q1

REPORT INFORMATION
  Report Type: Spontaneous
  Country: FR (occurrence: FR)
  Receive Date: 20160330
  Receipt Date: 20160330
  Transmission Date: 20160526
  Serious: Yes (Death, Hospitalization)
  Sender: FDA-Public Use
  Company Number: PHHY2016FR039369

PATIENT
  Age: 67 Year
  Sex: Male

DRUGS (2)
  1. FUSIDIC ACID [Interacting]
     Active Substance: FUSIDIC ACID
     Indication: STAPHYLOCOCCAL INFECTION
     Dosage: 500 MG, BID
     Route: 065
  2. PRAVASTATIN SODIUM. [Suspect]
     Active Substance: PRAVASTATIN SODIUM
     Indication: PRODUCT USED FOR UNKNOWN INDICATION
     Dosage: 40 MG, QD
     Route: 065
     Dates: start: 2007

REACTIONS (3)
  - Multiple organ dysfunction syndrome [Fatal]
  - Rhabdomyolysis [Fatal]
  - Drug interaction [Fatal]
